FAERS Safety Report 9408203 (Version 2)
Quarter: 2013Q3

REPORT INFORMATION
  Report Type: Report from Study
  Country: NZ (occurrence: NZ)
  Receive Date: 20130718
  Receipt Date: 20130813
  Transmission Date: 20140515
  Serious: Yes (Other)
  Sender: FDA-Public Use
  Company Number: NZ-CELGENEUS-118-C5013-13071005

PATIENT
  Age: 71 Year
  Sex: Male
  Weight: 97.2 kg

DRUGS (6)
  1. CC-5013 [Suspect]
     Indication: CHRONIC LYMPHOCYTIC LEUKAEMIA
     Route: 048
     Dates: start: 20130621, end: 20130709
  2. CC-5013 [Suspect]
     Route: 048
     Dates: start: 20121008
  3. FLUDARABINE [Suspect]
     Indication: CHRONIC LYMPHOCYTIC LEUKAEMIA
     Dosage: 40 MILLIGRAM
     Route: 065
     Dates: start: 20120416
  4. FLUDARABINE [Suspect]
     Dosage: 40 MILLIGRAM
     Route: 065
     Dates: start: 20120416
  5. FLUDARABINE [Suspect]
     Dosage: 40 MILLIGRAM
     Route: 065
     Dates: start: 20120611
  6. FLUDARABINE [Suspect]
     Dosage: 40 MILLIGRAM
     Route: 065
     Dates: start: 20120709

REACTIONS (1)
  - Acute myeloid leukaemia [Not Recovered/Not Resolved]
